FAERS Safety Report 6955007-7 (Version None)
Quarter: 2010Q3

REPORT INFORMATION
  Report Type: 
  Country: None (occurrence: None)
  Receive Date: 20100825
  Receipt Date: 20100811
  Transmission Date: 20110219
  Serious: Yes (Other)
  Sender: FDA-Public Use
  Company Number: 20100373

PATIENT
  Age: 68 Year
  Sex: Male

DRUGS (3)
  1. CYCLOSPORINE [Suspect]
     Indication: IMMUNOSUPPRESSANT DRUG THERAPY
     Dosage: INJECTION NOS
  2. IMURAN [Suspect]
  3. PREDNISONE [Suspect]

REACTIONS (5)
  - AORTIC STENOSIS [None]
  - BASEDOW'S DISEASE [None]
  - CARDIAC MURMUR [None]
  - EXCESSIVE OCULAR CONVERGENCE [None]
  - HYPERTHYROIDISM [None]
